FAERS Safety Report 4561007-7 (Version None)
Quarter: 2005Q1

REPORT INFORMATION
  Report Type: 
  Country: None (occurrence: None)
  Receive Date: 20050126
  Receipt Date: 20040712
  Transmission Date: 20050727
  Serious: Yes (Hospitalization)
  Sender: FDA-Public Use
  Company Number: US-BRISTOL-MYERS SQUIBB COMPANY-12638219

PATIENT
  Age: 53 Year
  Sex: Female
  Weight: 104 kg

DRUGS (3)
  1. GLUCOPHAGE [Suspect]
     Indication: DIABETES MELLITUS
     Dosage: THERAPY FROM:  ^OVER A YEAR AGO^
     Route: 048
  2. MULTIVITAMIN WITH MINERALS [Concomitant]
  3. LIPITOR [Concomitant]

REACTIONS (1)
  - DIARRHOEA [None]
